FAERS Safety Report 6836576-4 (Version None)
Quarter: 2010Q3

REPORT INFORMATION
  Report Type: 
  Country: None (occurrence: None)
  Receive Date: 20100713
  Receipt Date: 20100701
  Transmission Date: 20110219
  Serious: Yes (Other)
  Sender: FDA-Public Use
  Company Number: CH-WYE-G06345010

PATIENT
  Age: 23 Year
  Sex: Male

DRUGS (8)
  1. TAZOBAC [Suspect]
     Indication: ESCHERICHIA BACTERAEMIA
     Route: 042
     Dates: start: 20100526, end: 20100529
  2. TAZOBAC [Suspect]
     Indication: PSEUDOMONAS INFECTION
  3. FLAGYL [Suspect]
     Route: 048
     Dates: start: 20100523, end: 20100528
  4. ENOXAPARIN SODIUM [Suspect]
     Route: 058
     Dates: start: 20100524, end: 20100528
  5. NEXIUM [Suspect]
     Route: 048
     Dates: start: 20100523, end: 20100601
  6. KETOROLAC TROMETHAMINE [Suspect]
     Route: 042
     Dates: start: 20100523, end: 20100601
  7. ROCEPHIN [Suspect]
     Route: 042
     Dates: start: 20100523, end: 20100526
  8. DAFALGAN [Suspect]
     Route: 048
     Dates: start: 20100523, end: 20100526

REACTIONS (5)
  - BLOOD AMYLASE INCREASED [None]
  - CHOLECYSTITIS [None]
  - HEPATITIS [None]
  - HEPATOCELLULAR INJURY [None]
  - LIPASE INCREASED [None]
